FAERS Safety Report 5749964-4 (Version None)
Quarter: 2008Q2

REPORT INFORMATION
  Report Type: 
  Country: None (occurrence: None)
  Receive Date: 20080527
  Receipt Date: 20080521
  Transmission Date: 20081010
  Serious: Yes (Life-Threatening)
  Sender: FDA-Public Use
  Company Number: IT-ASTRAZENECA-2008SE02579

PATIENT
  Age: 24080 Day
  Sex: Female

DRUGS (6)
  1. ROSUVASTATIN [Suspect]
     Indication: HYPERCHOLESTEROLAEMIA
     Route: 048
     Dates: start: 20060401, end: 20080401
  2. PLAVIX [Concomitant]
  3. ALLOPURINOL [Concomitant]
  4. LASIX [Concomitant]
  5. MONOKET [Concomitant]
  6. NITRO-DUR [Concomitant]

REACTIONS (1)
  - GLOMERULONEPHRITIS RAPIDLY PROGRESSIVE [None]
